FAERS Safety Report 17468325 (Version 1)
Quarter: 2020Q1

REPORT INFORMATION
  Report Type: Report from Study
  Country: US (occurrence: US)
  Receive Date: 20200227
  Receipt Date: 20200227
  Transmission Date: 20200409
  Serious: Yes (Other)
  Sender: FDA-Public Use
  Company Number: US-B.I. PHARMACEUTICALS,INC./RIDGEFIELD-2019-BI-030993

PATIENT
  Age: 75 Year
  Sex: Female

DRUGS (1)
  1. OFEV [Suspect]
     Active Substance: NINTEDANIB
     Indication: IDIOPATHIC PULMONARY FIBROSIS
     Dosage: TAKE 1 CAPSULE TWICE A DAY 12 HOURS APART WITH FOOD
     Route: 048
     Dates: start: 20190501, end: 20191211

REACTIONS (17)
  - Weight decreased [Not Recovered/Not Resolved]
  - Nausea [Not Recovered/Not Resolved]
  - Dysphonia [Not Recovered/Not Resolved]
  - Flatulence [Not Recovered/Not Resolved]
  - Abdominal distension [Not Recovered/Not Resolved]
  - Tooth abscess [Not Recovered/Not Resolved]
  - Vomiting [Not Recovered/Not Resolved]
  - Night sweats [Not Recovered/Not Resolved]
  - Dental caries [Not Recovered/Not Resolved]
  - Headache [Not Recovered/Not Resolved]
  - Decreased appetite [Not Recovered/Not Resolved]
  - Kidney infection [Not Recovered/Not Resolved]
  - Cystitis [Unknown]
  - Feeling abnormal [Recovered/Resolved]
  - Off label use [Recovered/Resolved]
  - Constipation [Recovered/Resolved]
  - Depression [Not Recovered/Not Resolved]

NARRATIVE: CASE EVENT DATE: 2019
